FAERS Safety Report 17236330 (Version 1)
Quarter: 2019Q4

REPORT INFORMATION
  Report Type: Spontaneous
  Country: US (occurrence: US)
  Receive Date: 20191211
  Receipt Date: 20191211
  Transmission Date: 20200122
  Serious: Yes (Hospitalization)
  Sender: FDA-Public Use
  Company Number: None

PATIENT
  Age: 72 Year
  Sex: Female

DRUGS (2)
  1. CAPECITABINE 500MG [Suspect]
     Active Substance: CAPECITABINE
     Route: 048
     Dates: start: 20190930
  2. IBRANCE [Suspect]
     Active Substance: PALBOCICLIB
     Route: 048
     Dates: start: 20190125, end: 20190907

REACTIONS (4)
  - Pneumonia [None]
  - Metastases to liver [None]
  - Pulmonary embolism [None]
  - Influenza like illness [None]

NARRATIVE: CASE EVENT DATE: 20191120
